FAERS Safety Report 25761238 (Version 1)
Quarter: 2025Q3

REPORT INFORMATION
  Report Type: Spontaneous
  Country: US (occurrence: None)
  Receive Date: 20250903
  Receipt Date: 20250903
  Transmission Date: 20251021
  Serious: No
  Sender: FDA-CTU
  Company Number: None

PATIENT
  Age: 75 Year
  Sex: Female

DRUGS (1)
  1. LENALIDOMIDE [Suspect]
     Active Substance: LENALIDOMIDE
     Indication: Plasma cell myeloma
     Dosage: 2.5 MG DAILY ORAL
     Route: 048
     Dates: start: 20230721

REACTIONS (2)
  - Cerebrovascular accident [None]
  - Magnetic resonance imaging head abnormal [None]

NARRATIVE: CASE EVENT DATE: 20250616
